FAERS Safety Report 12355990 (Version 1)
Quarter: 2016Q2

REPORT INFORMATION
  Report Type: Spontaneous
  Country: US (occurrence: US)
  Receive Date: 20160511
  Receipt Date: 20160511
  Transmission Date: 20160815
  Serious: No
  Sender: FDA-Public Use
  Company Number: US-QOL MEDICAL, LLC-1051912

PATIENT
  Age: 76 Year
  Sex: Female
  Weight: 71.36 kg

DRUGS (6)
  1. IMDUR [Concomitant]
     Active Substance: ISOSORBIDE MONONITRATE
  2. SUCRAID [Suspect]
     Active Substance: SACROSIDASE
     Indication: PANCREATIC INSUFFICIENCY
     Route: 048
     Dates: start: 20131115
  3. SUCRAID [Suspect]
     Active Substance: SACROSIDASE
     Indication: CLOSTRIDIUM DIFFICILE INFECTION
     Route: 048
     Dates: start: 20131115
  4. SYNTHROID [Concomitant]
     Active Substance: LEVOTHYROXINE SODIUM
  5. EFFEXOR [Concomitant]
     Active Substance: VENLAFAXINE HYDROCHLORIDE
  6. ZENTAB [Concomitant]

REACTIONS (11)
  - Headache [None]
  - Dizziness [None]
  - Liquid product physical issue [None]
  - Angina pectoris [Unknown]
  - Product taste abnormal [None]
  - Blood pressure increased [None]
  - Product preparation error [None]
  - Incorrect dose administered [None]
  - Coronary artery occlusion [None]
  - Vision blurred [None]
  - Blood pressure fluctuation [None]

NARRATIVE: CASE EVENT DATE: 20150907
